FAERS Safety Report 18509554 (Version 3)
Quarter: 2021Q1

REPORT INFORMATION
  Report Type: Report from Study
  Country: None (occurrence: US)
  Receive Date: 20201117
  Receipt Date: 20210116
  Transmission Date: 20210419
  Serious: Yes (Other)
  Sender: FDA-Public Use
  Company Number: US-ABBVIE-20K-163-3603045-00

PATIENT
  Sex: Female

DRUGS (3)
  1. HUMIRA [Suspect]
     Active Substance: ADALIMUMAB
     Dosage: CITRATE FREE
     Route: 058
     Dates: start: 2020, end: 2020
  2. HUMIRA [Suspect]
     Active Substance: ADALIMUMAB
     Dosage: CITRATE FREE
     Route: 058
     Dates: start: 2020
  3. HUMIRA [Suspect]
     Active Substance: ADALIMUMAB
     Indication: RHEUMATOID ARTHRITIS
     Dosage: CITRATE FREE, TWO TIME A MONTH
     Route: 058
     Dates: start: 2015, end: 2020

REACTIONS (10)
  - Joint dislocation [Unknown]
  - Illness [Unknown]
  - Pain in extremity [Unknown]
  - Bronchitis [Recovered/Resolved]
  - Chest pain [Recovering/Resolving]
  - Osteoporosis [Unknown]
  - Osteoarthritis [Unknown]
  - Oropharyngeal pain [Recovering/Resolving]
  - Pain [Unknown]
  - Rheumatoid arthritis [Unknown]

NARRATIVE: CASE EVENT DATE: 2020
